FAERS Safety Report 7146054-3 (Version None)
Quarter: 2010Q4

REPORT INFORMATION
  Report Type: 
  Country: None (occurrence: None)
  Receive Date: 20101208
  Receipt Date: 20101105
  Transmission Date: 20110411
  Serious: No
  Sender: FDA-Public Use
  Company Number: US-BAYER-201023624BCC

PATIENT
  Sex: Male
  Weight: 93.182 kg

DRUGS (1)
  1. ALEVE [Suspect]
     Indication: TOOTHACHE
     Dosage: DAILY DOSE 660 MG
     Route: 048
     Dates: start: 20101105

REACTIONS (2)
  - DIZZINESS [None]
  - SOMNOLENCE [None]
